FAERS Safety Report 5384965-X (Version None)
Quarter: 2007Q3

REPORT INFORMATION
  Report Type: 
  Country: None (occurrence: None)
  Receive Date: 20070709
  Receipt Date: 20070621
  Transmission Date: 20080115
  Serious: Yes (Other)
  Sender: FDA-Public Use
  Company Number: 5093 / 2007S1005673

PATIENT
  Age: 20 Year
  Sex: Male

DRUGS (2)
  1. AMNESTEEM [Suspect]
     Indication: ACNE
     Dosage: 40 MG, QD, PO
     Route: 048
     Dates: start: 20061101, end: 20061219
  2. ALBUTEROL [Concomitant]

REACTIONS (5)
  - ABNORMAL SENSATION IN EYE [None]
  - HEADACHE [None]
  - NIGHT BLINDNESS [None]
  - SUICIDAL IDEATION [None]
  - VISION BLURRED [None]
